FAERS Safety Report 15761635 (Version 1)
Quarter: 2018Q4

REPORT INFORMATION
  Report Type: Spontaneous
  Country: AU (occurrence: AU)
  Receive Date: 20181207
  Receipt Date: 20181207
  Transmission Date: 20190205
  Serious: Yes (Other)
  Sender: FDA-Public Use
  Company Number: None

PATIENT
  Age: 38 Year
  Sex: Female
  Weight: 65 kg

DRUGS (1)
  1. CIPROFLOXACIN. [Suspect]
     Active Substance: CIPROFLOXACIN
     Indication: URINARY TRACT INFECTION
     Dosage: ?          QUANTITY:3 TABLET(S);?
     Route: 048
     Dates: start: 20181126, end: 20181127

REACTIONS (2)
  - Depression [None]
  - Anxiety [None]

NARRATIVE: CASE EVENT DATE: 20181126
